FAERS Safety Report 21949809 (Version 1)
Quarter: 2023Q1

REPORT INFORMATION
  Report Type: Spontaneous
  Country: US (occurrence: None)
  Receive Date: 20230202
  Receipt Date: 20230202
  Transmission Date: 20230417
  Serious: No
  Sender: FDA-Public Use
  Company Number: None

PATIENT
  Age: 46 Year
  Sex: Female

DRUGS (1)
  1. DUPIXENT [Suspect]
     Active Substance: DUPILUMAB
     Indication: Asthma
     Dosage: OTHER FREQUENCY : BIWEEKLY;?
     Route: 042
     Dates: start: 20211109

REACTIONS (4)
  - Ligament sprain [None]
  - Ligament disorder [None]
  - Impaired driving ability [None]
  - Crepitations [None]

NARRATIVE: CASE EVENT DATE: 20230202
